FAERS Safety Report 9173346 (Version 1)
Quarter: 2013Q1

REPORT INFORMATION
  Report Type: Spontaneous
  Country: TW (occurrence: None)
  Receive Date: 20130315
  Receipt Date: 20130315
  Transmission Date: 20140127
  Serious: Yes (Other)
  Sender: FDA-Public Use
  Company Number: IPC201303-000065

PATIENT
  Age: 38 Year
  Sex: Female
  Weight: 45 kg

DRUGS (1)
  1. FUROSEMIDE [Suspect]
     Indication: BODY DYSMORPHIC DISORDER
     Dosage: -STOPPED

REACTIONS (2)
  - Hypokalaemia [None]
  - Nephrocalcinosis [None]
